FAERS Safety Report 8203418-4 (Version None)
Quarter: 2012Q1

REPORT INFORMATION
  Report Type: 
  Country: None (occurrence: None)
  Receive Date: 20120313
  Receipt Date: 20120228
  Transmission Date: 20120608
  Serious: Yes (Other)
  Sender: FDA-Public Use
  Company Number: NL-AMGEN-NLDSP2011057565

PATIENT
  Age: 45 Year
  Sex: Male

DRUGS (10)
  1. NEXIUM [Concomitant]
     Dosage: UNK UNK, UNK
  2. DALACIN                            /00166002/ [Concomitant]
     Dosage: UNK UNK, UNK
  3. ARESTAL                            /00384303/ [Concomitant]
     Dosage: UNK UNK, UNK
  4. ENBREL [Suspect]
     Indication: ANKYLOSING SPONDYLITIS
     Dosage: 50 MG, WEEKLY
     Dates: start: 20110920
  5. ARCOXIA [Concomitant]
     Dosage: UNK UNK, UNK
  6. KETOCONAZOLE [Concomitant]
     Dosage: UNK UNK, UNK
  7. FLUTICASONE PROPIONATE [Concomitant]
     Dosage: UNK UNK, UNK
  8. METHOTREXATE SODIUM [Concomitant]
     Dosage: UNK
  9. ACETAMINOPHEN [Concomitant]
     Dosage: UNK UNK, UNK
  10. LEVOCETIRIZINE DIHYDROCHLORIDE [Concomitant]
     Dosage: UNK UNK, UNK

REACTIONS (2)
  - DRUG INEFFECTIVE [None]
  - PSORIATIC ARTHROPATHY [None]
